FAERS Safety Report 17043974 (Version 1)
Quarter: 2019Q4

REPORT INFORMATION
  Report Type: Report from Study
  Country: GB (occurrence: GB)
  Receive Date: 20191118
  Receipt Date: 20191118
  Transmission Date: 20200122
  Serious: Yes (Other)
  Sender: FDA-Public Use
  Company Number: NVSC2019GB038300

PATIENT
  Age: 68 Year
  Sex: Female

DRUGS (1)
  1. KISQALI [Suspect]
     Active Substance: RIBOCICLIB
     Indication: BREAST CANCER
     Dosage: 600 MG, QD (DAILY)
     Route: 048
     Dates: start: 20190808

REACTIONS (2)
  - Lower respiratory tract infection [Unknown]
  - Depressed mood [Unknown]

NARRATIVE: CASE EVENT DATE: 201910
